FAERS Safety Report 13852905 (Version 1)
Quarter: 2017Q3

REPORT INFORMATION
  Report Type: Spontaneous
  Country: US (occurrence: US)
  Receive Date: 20170809
  Receipt Date: 20170809
  Transmission Date: 20171127
  Serious: No
  Sender: FDA-Public Use
  Company Number: US-ROCHE-420012

PATIENT
  Age: 61 Year
  Sex: Female
  Weight: 48.5 kg

DRUGS (8)
  1. TICLOPIDINE [Concomitant]
     Active Substance: TICLOPIDINE
     Indication: PLATELET COUNT INCREASED
     Route: 065
  2. BONIVA [Suspect]
     Active Substance: IBANDRONATE SODIUM
     Indication: OSTEOPOROSIS
     Dosage: PATIENT REPORTED HAD RECEIVED ONE DOSE.?THE PATIENT RECEIVED IV IBANDRONIC ACID FOR PAST 2 YEARS
     Route: 042
     Dates: start: 200801, end: 20100104
  3. COUMADIN [Concomitant]
     Active Substance: WARFARIN SODIUM
     Indication: PLATELET COUNT INCREASED
     Route: 048
  4. METOPROLOL. [Concomitant]
     Active Substance: METOPROLOL
     Indication: HYPERTENSION
     Route: 048
  5. SYNTHROID [Concomitant]
     Active Substance: LEVOTHYROXINE SODIUM
     Indication: HYPOTHYROIDISM
     Route: 048
  6. POTASSIUM CHLORIDE. [Concomitant]
     Active Substance: POTASSIUM CHLORIDE
     Indication: NUTRITIONAL SUPPLEMENTATION
     Route: 065
  7. BONIVA [Suspect]
     Active Substance: IBANDRONATE SODIUM
     Indication: OSTEOPOROSIS
     Dosage: ABOUT 4 YEARS AGO
     Route: 048
  8. TORSEMIDE. [Concomitant]
     Active Substance: TORSEMIDE
     Indication: FLUID RETENTION
     Route: 048

REACTIONS (12)
  - Breast pain [Not Recovered/Not Resolved]
  - Insomnia [Unknown]
  - Pain in jaw [Not Recovered/Not Resolved]
  - Osteoporosis [Unknown]
  - Gastrointestinal disorder [Unknown]
  - Bone pain [Unknown]
  - Myalgia [Unknown]
  - Abdominal discomfort [Unknown]
  - Alopecia [Unknown]
  - Tremor [Not Recovered/Not Resolved]
  - Fluid retention [Not Recovered/Not Resolved]
  - Abdominal pain [Not Recovered/Not Resolved]

NARRATIVE: CASE EVENT DATE: 200509
